FAERS Safety Report 5640013-5 (Version None)
Quarter: 2008Q1

REPORT INFORMATION
  Report Type: 
  Country: None (occurrence: None)
  Receive Date: 20080227
  Receipt Date: 20080207
  Transmission Date: 20080703
  Serious: No
  Sender: FDA-Public Use
  Company Number: US-BAYER-200813497NA

PATIENT
  Age: 34 Year
  Sex: Female

DRUGS (3)
  1. YASMIN [Suspect]
     Indication: MENORRHAGIA
     Route: 048
     Dates: start: 20080131
  2. TYLENOL (CAPLET) [Concomitant]
  3. MULTI-VITAMIN [Concomitant]
     Route: 048

REACTIONS (2)
  - DIZZINESS [None]
  - NERVOUSNESS [None]
